FAERS Safety Report 8585104-4 (Version None)
Quarter: 2012Q3

REPORT INFORMATION
  Report Type: 
  Country: None (occurrence: None)
  Receive Date: 20120810
  Receipt Date: 20120807
  Transmission Date: 20120928
  Serious: Yes (Life-Threatening, Other)
  Sender: FDA-Public Use
  Company Number: CA-AMGEN-CANNI2011065119

PATIENT
  Age: 79 Year
  Sex: Male
  Weight: 68 kg

DRUGS (3)
  1. ENBREL [Suspect]
     Indication: PRODUCT USED FOR UNKNOWN INDICATION
     Dosage: UNK
     Route: 065
     Dates: start: 20070601, end: 20111101
  2. STELARA [Concomitant]
     Dosage: UNK
     Dates: start: 20070901, end: 20071001
  3. HUMIRA [Suspect]
     Dosage: UNK
     Route: 065
     Dates: start: 20080301, end: 20080801

REACTIONS (2)
  - METASTATIC NEOPLASM [None]
  - WEIGHT DECREASED [None]
